FAERS Safety Report 11700272 (Version 1)
Quarter: 2015Q4

REPORT INFORMATION
  Report Type: Spontaneous
  Country: US (occurrence: US)
  Receive Date: 20151105
  Receipt Date: 20151105
  Transmission Date: 20160304
  Serious: No
  Sender: FDA-Public Use
  Company Number: US-PFIZER INC-2015364480

PATIENT
  Age: 75 Year
  Sex: Female
  Weight: 59.41 kg

DRUGS (2)
  1. LETROZOLE. [Concomitant]
     Active Substance: LETROZOLE
  2. IBRANCE [Suspect]
     Active Substance: PALBOCICLIB
     Indication: BREAST CANCER
     Dosage: 125 MG, CYCLIC (125 MG D1-D21 Q28)
     Route: 048
     Dates: start: 20150713, end: 20151022

REACTIONS (4)
  - Epistaxis [Unknown]
  - Headache [Unknown]
  - Dyspnoea [Unknown]
  - Hypoaesthesia [Unknown]
